FAERS Safety Report 6256111-1 (Version None)
Quarter: 2009Q3

REPORT INFORMATION
  Report Type: 
  Country: None (occurrence: None)
  Receive Date: 20090706
  Receipt Date: 20090630
  Transmission Date: 20100115
  Serious: Yes (Death)
  Sender: FDA-Public Use
  Company Number: JP-JNJFOC-20090700481

PATIENT
  Sex: Female
  Weight: 36 kg

DRUGS (8)
  1. DUROTEP MT PATCH [Suspect]
     Route: 062
  2. DUROTEP MT PATCH [Suspect]
     Route: 062
  3. DUROTEP MT PATCH [Suspect]
     Indication: CANCER PAIN
     Route: 062
  4. ANPEC (MORPHINE HYDROCHLORIDE) [Concomitant]
     Indication: CANCER PAIN
     Route: 054
  5. KENTAN [Concomitant]
     Indication: ANALGESIC THERAPY
     Dosage: AS NEEDED
     Route: 048
  6. FENTANYL CITRATE [Concomitant]
     Indication: ANALGESIC THERAPY
     Route: 042
  7. FENTANYL CITRATE [Concomitant]
     Route: 008
  8. PENTAZOCINE LACTATE [Concomitant]
     Indication: ANALGESIC THERAPY
     Route: 042

REACTIONS (1)
  - PANCREATIC CARCINOMA [None]
